FAERS Safety Report 23549832 (Version 1)
Quarter: 2024Q1

REPORT INFORMATION
  Report Type: Spontaneous
  Country: US (occurrence: US)
  Receive Date: 20240221
  Receipt Date: 20240221
  Transmission Date: 20240409
  Serious: Yes (Other)
  Sender: FDA-Public Use
  Company Number: US-REGENERON PHARMACEUTICALS, INC.-2024-033422

PATIENT
  Sex: Male

DRUGS (1)
  1. LIBTAYO [Suspect]
     Active Substance: CEMIPLIMAB-RWLC
     Indication: Product used for unknown indication

REACTIONS (9)
  - Skin cancer [Unknown]
  - Impaired healing [Unknown]
  - Psoriasis [Unknown]
  - Haemorrhagic disorder [Unknown]
  - Multiple allergies [Unknown]
  - Hypercholesterolaemia [Unknown]
  - Actinic keratosis [Unknown]
  - Seborrhoeic keratosis [Unknown]
  - Skin disorder [Unknown]
